FAERS Safety Report 8105739 (Version 3)
Quarter: 2012Q4

REPORT INFORMATION
  Report Type: 
  Country: US (occurrence: US)
  Receive Date: 20110825
  Receipt Date: 20121011
  Transmission Date: 20130627
  Serious: Yes (Hospitalization, Other)
  Sender: FDA-Public Use
  Company Number: US-BAYER-2011-075642

PATIENT
  Age: 21 Year
  Sex: Female
  Weight: 54.42 kg

DRUGS (7)
  1. YAZ [Suspect]
     Indication: CONTRACEPTION
     Dosage: UNK
     Route: 048
     Dates: start: 2007, end: 200811
  2. ADDERALL XR [Concomitant]
     Indication: ATTENTION DEFICIT/HYPERACTIVITY DISORDER
     Dosage: 20 mg, QD
     Dates: start: 2006
  3. ADDERALL XR [Concomitant]
     Indication: CONTRACEPTION
  4. NAPROXEN [Concomitant]
     Dosage: 550 mg, UNK
     Dates: start: 20081112
  5. ESTROGEN NOS [Concomitant]
  6. ASPIRIN [Concomitant]
  7. PERCOCET [Concomitant]

REACTIONS (6)
  - Pulmonary embolism [None]
  - Deep vein thrombosis [Recovered/Resolved]
  - Pulmonary haemorrhage [None]
  - Pleural effusion [None]
  - Atelectasis [None]
  - Chest pain [None]
